FAERS Safety Report 9886170 (Version 2)
Quarter: 2014Q1

REPORT INFORMATION
  Report Type: Spontaneous
  Country: US (occurrence: US)
  Receive Date: 20140210
  Receipt Date: 20140210
  Transmission Date: 20141002
  Serious: Yes (Death, Hospitalization)
  Sender: FDA-Public Use
  Company Number: US-BAXTER-2014BAX005337

PATIENT
  Sex: Female

DRUGS (1)
  1. DIANEAL LOW CALCIUM [Suspect]
     Indication: PERITONEAL DIALYSIS
     Route: 033
     Dates: start: 20111024, end: 20140109

REACTIONS (5)
  - Respiratory arrest [Fatal]
  - Failure to thrive [Fatal]
  - Renal failure chronic [Fatal]
  - Therapy cessation [Fatal]
  - Hypertension [Fatal]
